FAERS Safety Report 11008502 (Version 1)
Quarter: 2015Q2

REPORT INFORMATION
  Report Type: Spontaneous
  Country: US (occurrence: None)
  Receive Date: 20150409
  Receipt Date: 20150409
  Transmission Date: 20150821
  Serious: No
  Sender: FDA-Public Use
  Company Number: None

PATIENT
  Age: 17 Year
  Sex: Female
  Weight: 92.08 kg

DRUGS (4)
  1. FENTANYL. [Concomitant]
     Active Substance: FENTANYL
  2. LACTATED RINGERS [Concomitant]
     Active Substance: CALCIUM CHLORIDE\POTASSIUM CHLORIDE\SODIUM CHLORIDE\SODIUM LACTATE
  3. PENICILLIN G POTASSIUM. [Suspect]
     Active Substance: PENICILLIN G POTASSIUM
     Indication: STREPTOCOCCUS TEST POSITIVE
     Route: 042
  4. OXYTOCIN. [Concomitant]
     Active Substance: OXYTOCIN

REACTIONS (6)
  - Urticaria [None]
  - Erythema [None]
  - Dyspnoea [None]
  - Lip swelling [None]
  - Pruritus [None]
  - Maternal exposure during delivery [None]

NARRATIVE: CASE EVENT DATE: 20150403
